FAERS Safety Report 5691480-2 (Version None)
Quarter: 2008Q1

REPORT INFORMATION
  Report Type: 
  Country: None (occurrence: None)
  Receive Date: 20080331
  Receipt Date: 20080318
  Transmission Date: 20080703
  Serious: Yes (Hospitalization)
  Sender: FDA-Public Use
  Company Number: US023024

PATIENT
  Age: 99 Year
  Sex: Female
  Weight: 63.05 kg

DRUGS (10)
  1. GABITRIL [Suspect]
     Indication: AGITATION
     Dosage: 4 MG TID ORAL
     Route: 048
     Dates: start: 20050901
  2. GABITRIL [Suspect]
     Indication: PSYCHOTIC DISORDER
     Dosage: 4 MG TID ORAL
     Route: 048
     Dates: start: 20050901
  3. GABITRIL [Suspect]
     Indication: DEMENTIA
     Dosage: 8 MG BID ORAL
     Route: 048
  4. GABITRIL [Suspect]
     Indication: PSYCHOTIC DISORDER
     Dosage: 8 MG BID ORAL
     Route: 048
  5. GABITRIL [Suspect]
     Indication: AGITATION
     Dosage: 8 MG TID ORAL
     Route: 048
     Dates: start: 20070101
  6. GABITRIL [Suspect]
     Indication: DEMENTIA
     Dosage: 8 MG TID ORAL
     Route: 048
     Dates: start: 20070101
  7. TRAZODONE HCL [Concomitant]
  8. TYLENOL (CAPLET) [Concomitant]
  9. VITAMIN TAB [Concomitant]
  10. METOPROLOL TARTRATE [Concomitant]

REACTIONS (3)
  - GRAND MAL CONVULSION [None]
  - STATUS EPILEPTICUS [None]
  - URINARY TRACT INFECTION [None]
